FAERS Safety Report 6098997-X (Version None)
Quarter: 2009Q1

REPORT INFORMATION
  Report Type: 
  Country: None (occurrence: None)
  Receive Date: 20090302
  Receipt Date: 20090216
  Transmission Date: 20090719
  Serious: Yes (Hospitalization)
  Sender: FDA-Public Use
  Company Number: FR-ROCHE-588558

PATIENT
  Sex: Male
  Weight: 59 kg

DRUGS (2)
  1. CAPECITABINE [Suspect]
     Dosage: AS PER SYNOPSIS: CAPECITABINE = 1600 MG/M2/J (5 DAYS/7)
     Route: 048
     Dates: start: 20080602
  2. OXALIPLATIN [Suspect]
     Dosage: AS PER SYNOPSIS: OXALIPLATINE =50 MG/M2 WEEKLY.
     Route: 042
     Dates: start: 20080602

REACTIONS (1)
  - PELVIC ABSCESS [None]
